FAERS Safety Report 4695624-0 (Version None)
Quarter: 2005Q2

REPORT INFORMATION
  Report Type: 
  Country: None (occurrence: None)
  Receive Date: 20050621
  Receipt Date: 20050608
  Transmission Date: 20051028
  Serious: Yes (Hospitalization)
  Sender: FDA-Public Use
  Company Number: PHBS2005CA08245

PATIENT
  Age: 46 Year
  Sex: Female

DRUGS (2)
  1. VOLTAREN [Suspect]
     Indication: MIGRAINE
     Dosage: 150 MG/DAY
     Route: 048
     Dates: start: 20050529, end: 20050531
  2. CARBAMAZEPINE [Interacting]
     Indication: EPILEPSY

REACTIONS (3)
  - CONFUSIONAL STATE [None]
  - DRUG INTERACTION [None]
  - DRUG LEVEL INCREASED [None]
